FAERS Safety Report 19674111 (Version 1)
Quarter: 2021Q3

REPORT INFORMATION
  Report Type: Other
  Country: AT (occurrence: AT)
  Receive Date: 20210809
  Receipt Date: 20210809
  Transmission Date: 20211014
  Serious: Yes (Other)
  Sender: FDA-Public Use
  Company Number: AT-ROCHE-2850392

PATIENT
  Age: 50 Year
  Sex: Female
  Weight: 55 kg

DRUGS (17)
  1. ULSAL [Concomitant]
     Active Substance: RANITIDINE HYDROCHLORIDE
     Dates: start: 20201123
  2. DRONABINOL. [Concomitant]
     Active Substance: DRONABINOL
     Dates: start: 202103
  3. NEUROMULTIVIT [Concomitant]
     Active Substance: CYANOCOBALAMIN\PYRIDOXINE\THIAMINE
     Dates: start: 20201218
  4. CIPROFLOXACIN. [Concomitant]
     Active Substance: CIPROFLOXACIN
     Dates: start: 20210510, end: 202105
  5. BEVACIZUMAB. [Suspect]
     Active Substance: BEVACIZUMAB
     Indication: NON-SMALL CELL LUNG CANCER
     Route: 065
     Dates: start: 20201215
  6. FENISTIL [Concomitant]
     Active Substance: DIMETHINDENE
  7. FORTECORTIN [Concomitant]
     Active Substance: DEXAMETHASONE
     Dates: start: 20201122
  8. ENTEROBENE [Concomitant]
     Dates: start: 20210427
  9. PACLITAXEL. [Suspect]
     Active Substance: PACLITAXEL
     Indication: NON-SMALL CELL LUNG CANCER
     Route: 065
     Dates: start: 20201215
  10. DESLORATADIN [Concomitant]
     Active Substance: DESLORATADINE
  11. CARBOPLATIN. [Suspect]
     Active Substance: CARBOPLATIN
     Indication: NON-SMALL CELL LUNG CANCER
     Route: 065
     Dates: start: 20201215
  12. RATIOGRASTIM [Concomitant]
     Active Substance: FILGRASTIM
     Dates: start: 20210104
  13. PANTOPRAZOL [Concomitant]
     Active Substance: PANTOPRAZOLE SODIUM
     Dates: start: 20210422, end: 20210427
  14. ATEZOLIZUMAB. [Suspect]
     Active Substance: ATEZOLIZUMAB
     Indication: NON-SMALL CELL LUNG CANCER
     Dosage: ON 27/APR/2021, SHE RECEIVED THE MOST RECENT DOSE OF ATEZOLIZUMAB PRIOR TO SAE.
     Route: 041
     Dates: start: 20201215
  15. DIBONDRIN [Concomitant]
     Active Substance: DIPHENHYDRAMINE HYDROCHLORIDE
     Dates: start: 20201123
  16. APREDNISLON [Concomitant]
     Active Substance: PREDNISOLONE
     Dates: start: 20210422, end: 20210427
  17. PELMEG [Concomitant]
     Active Substance: PEGFILGRASTIM
     Dates: start: 20210114

REACTIONS (1)
  - Immune-mediated enterocolitis [Recovering/Resolving]

NARRATIVE: CASE EVENT DATE: 20210518
